FAERS Safety Report 4635279-4 (Version None)
Quarter: 2005Q2

REPORT INFORMATION
  Report Type: 
  Country: None (occurrence: None)
  Receive Date: 20050411
  Receipt Date: 20050329
  Transmission Date: 20051028
  Serious: Yes (Disabling, Other)
  Sender: FDA-Public Use
  Company Number: 2005051555

PATIENT
  Age: 86 Year
  Sex: Female
  Weight: 42.6381 kg

DRUGS (6)
  1. XALATAN [Suspect]
     Indication: GLAUCOMA
     Dosage: OPHTHALMIC
     Route: 047
  2. FLUVASTATIN (FLUVASTATIN) [Concomitant]
  3. DONEPEZIL HCL [Concomitant]
  4. ACETYLSALICYLIC ACID SRT [Concomitant]
  5. VITAMNS (VITAMINS0 [Concomitant]
  6. CAPTOPRIL [Concomitant]

REACTIONS (3)
  - EYE EXCISION [None]
  - EYE INFECTION [None]
  - MEDICATION ERROR [None]
